FAERS Safety Report 14716300 (Version 1)
Quarter: 2018Q2

REPORT INFORMATION
  Report Type: Spontaneous
  Country: GB (occurrence: GB)
  Receive Date: 20180404
  Receipt Date: 20180404
  Transmission Date: 20180711
  Serious: Yes (Hospitalization, Other)
  Sender: FDA-Public Use
  Company Number: GB-IMPAX LABORATORIES, INC-2018-IPXL-01034

PATIENT
  Age: 24 Year
  Sex: Male

DRUGS (8)
  1. VITAMIN C [Suspect]
     Active Substance: ASCORBIC ACID
     Indication: PRODUCT USED FOR UNKNOWN INDICATION
     Dosage: 1 G, UNK
     Route: 065
  2. CREATINE PHOSPHATE SODIUM [Suspect]
     Active Substance: CREATINE
     Indication: SUPPLEMENTATION THERAPY
     Dosage: UNK
     Route: 065
  3. DANTROLENE SODIUM. [Suspect]
     Active Substance: DANTROLENE SODIUM
     Indication: PRODUCT USED FOR UNKNOWN INDICATION
     Dosage: UNK
     Route: 065
  4. GLUCOSE [Suspect]
     Active Substance: DEXTROSE
     Indication: PRODUCT USED FOR UNKNOWN INDICATION
     Dosage: 20 % INFUSION, UNK
     Route: 050
  5. HYDROCORTISONE. [Suspect]
     Active Substance: HYDROCORTISONE
     Indication: PRODUCT USED FOR UNKNOWN INDICATION
     Dosage: 200 MG, UNK
     Route: 065
  6. INSULIN [Suspect]
     Active Substance: INSULIN NOS
     Indication: PRODUCT USED FOR UNKNOWN INDICATION
     Dosage: INFUSION, UNK
     Route: 042
  7. DANTROLENE SODIUM. [Suspect]
     Active Substance: DANTROLENE SODIUM
     Dosage: INCREMENT DOSES TO 10 MG/KG IN TOTAL
     Route: 065
  8. DINITROPHENOL [Suspect]
     Active Substance: 2,4-DINITROPHENOL
     Indication: PRODUCT USED FOR UNKNOWN INDICATION
     Dosage: 1380 MG, UNK
     Route: 048

REACTIONS (1)
  - Compartment syndrome [Unknown]
